FAERS Safety Report 5277360-5 (Version None)
Quarter: 2007Q1

REPORT INFORMATION
  Report Type: 
  Country: None (occurrence: None)
  Receive Date: 20070327
  Receipt Date: 20070320
  Transmission Date: 20070707
  Serious: Yes (Death)
  Sender: FDA-Public Use
  Company Number: 2007AC00473

PATIENT
  Age: 62 Year
  Sex: Female

DRUGS (5)
  1. QUETIAPINE FUMARATE [Suspect]
     Route: 048
  2. HYDROCODONE [Suspect]
  3. MIRTAZAPINE [Suspect]
  4. DIPHENHYDRAMINE HCL [Suspect]
  5. TEMAZEPAM [Concomitant]

REACTIONS (2)
  - COMPLETED SUICIDE [None]
  - DRUG TOXICITY [None]
